FAERS Safety Report 16799314 (Version 7)
Quarter: 2021Q3

REPORT INFORMATION
  Report Type: Spontaneous
  Country: US (occurrence: US)
  Receive Date: 20190912
  Receipt Date: 20210917
  Transmission Date: 20211014
  Serious: Yes (Other)
  Sender: FDA-Public Use
  Company Number: US-PFIZER INC-2019394812

PATIENT
  Age: 81 Year
  Sex: Female
  Weight: 66.2 kg

DRUGS (8)
  1. LYRICA [Suspect]
     Active Substance: PREGABALIN
     Indication: NEUROPATHY PERIPHERAL
     Dosage: 50 MG, 3X/DAY (90 DAYS)
     Route: 048
     Dates: start: 201408
  2. LYRICA [Suspect]
     Active Substance: PREGABALIN
     Indication: PAIN
  3. LYRICA [Suspect]
     Active Substance: PREGABALIN
     Indication: HYPOAESTHESIA
  4. ALPHA LIPOIC ACID [Concomitant]
     Active Substance: .ALPHA.-LIPOIC ACID
     Indication: HYPOAESTHESIA
     Dosage: UNK
  5. LAMICTAL [Concomitant]
     Active Substance: LAMOTRIGINE
     Indication: SEIZURE
     Dosage: 100 MG, DAILY
     Route: 048
  6. LYRICA [Suspect]
     Active Substance: PREGABALIN
     Indication: PAIN IN EXTREMITY
  7. VITAMIN B12 [Concomitant]
     Active Substance: CYANOCOBALAMIN
     Indication: HYPOAESTHESIA
     Dosage: UNK
  8. LAMICTAL XR [Concomitant]
     Active Substance: LAMOTRIGINE
     Indication: SEIZURE
     Dosage: 100 MG, DAILY
     Route: 048

REACTIONS (11)
  - Illness [Unknown]
  - Intentional product misuse [Unknown]
  - Movement disorder [Unknown]
  - Arthralgia [Unknown]
  - Back pain [Unknown]
  - Product dose omission issue [Unknown]
  - Musculoskeletal pain [Unknown]
  - Pain [Unknown]
  - Therapeutic response unexpected [Unknown]
  - Hypoacusis [Unknown]
  - Pre-existing condition improved [Unknown]
